FAERS Safety Report 21562364 (Version 7)
Quarter: 2023Q2

REPORT INFORMATION
  Report Type: Report from Study
  Country: CA (occurrence: CA)
  Receive Date: 20221107
  Receipt Date: 20230411
  Transmission Date: 20230722
  Serious: Yes (Hospitalization, Other)
  Sender: FDA-Public Use
  Company Number: CA-TAIHO-2022-002002

PATIENT
  Age: 65 Year
  Sex: Female

DRUGS (3)
  1. LONSURF [Suspect]
     Active Substance: TIPIRACIL HYDROCHLORIDE\TRIFLURIDINE
     Indication: Colorectal cancer metastatic
     Dosage: DOSE, FREQUENCY AND CYCLE UNKNOWN
     Route: 048
     Dates: start: 20180618
  2. LONSURF [Suspect]
     Active Substance: TIPIRACIL HYDROCHLORIDE\TRIFLURIDINE
     Dosage: DOSE, FREQUENCY AND CYCLE UNKNOWN.
     Route: 048
     Dates: start: 20221003
  3. FILGRASTIM [Suspect]
     Active Substance: FILGRASTIM
     Indication: Product used for unknown indication
     Route: 050

REACTIONS (12)
  - Cholelithiasis [Unknown]
  - Rectal haemorrhage [Recovered/Resolved]
  - Neuropathy peripheral [Unknown]
  - Burning sensation [Unknown]
  - Alopecia [Not Recovered/Not Resolved]
  - Proctitis [Recovered/Resolved]
  - Insomnia [Unknown]
  - Inflammatory pain [Unknown]
  - Pyrexia [Unknown]
  - Fatigue [Unknown]
  - Diarrhoea [Unknown]
  - Nausea [Unknown]

NARRATIVE: CASE EVENT DATE: 20221107
